FAERS Safety Report 24749540 (Version 6)
Quarter: 2025Q2

REPORT INFORMATION
  Report Type: Spontaneous
  Country: US (occurrence: US)
  Receive Date: 20241218
  Receipt Date: 20250607
  Transmission Date: 20250716
  Serious: No
  Sender: DAIICHI
  Company Number: US-DAIICHI SANKYO, INC.-DS-2024-114871-USAA

PATIENT
  Age: 55 Year
  Sex: Female

DRUGS (4)
  1. VANFLYTA [Suspect]
     Active Substance: QUIZARTINIB DIHYDROCHLORIDE
     Indication: Acute leukaemia
     Dosage: 35.4 MG (2 X 17.7MG), QD
     Route: 048
     Dates: start: 20240425
  2. VANFLYTA [Suspect]
     Active Substance: QUIZARTINIB DIHYDROCHLORIDE
     Indication: Leukaemia
     Dosage: 35.4 MG (2 X 17.7MG), QD (ON DAYS 6-19 OF EACH TREATMENT CYCLE)
     Route: 048
     Dates: start: 20241219
  3. VANFLYTA [Suspect]
     Active Substance: QUIZARTINIB DIHYDROCHLORIDE
     Dosage: TAKE 2 TABLETS (53MG) BY MOUTH ONCE DAILY
     Route: 048
     Dates: start: 20241219
  4. VANFLYTA [Suspect]
     Active Substance: QUIZARTINIB DIHYDROCHLORIDE
     Dosage: TAKE 2 TABLETS (35.4 MG TOTAL DOSE), DAILY ON DAYS 6-19 OF EACH TREATMENT CYCLE
     Route: 048
     Dates: start: 20250314

REACTIONS (4)
  - Laboratory test abnormal [Not Recovered/Not Resolved]
  - Sinusitis [Not Recovered/Not Resolved]
  - Off label use [Unknown]
  - Off label use [Unknown]

NARRATIVE: CASE EVENT DATE: 20241212
